FAERS Safety Report 8103847-3 (Version None)
Quarter: 2012Q1

REPORT INFORMATION
  Report Type: 
  Country: None (occurrence: None)
  Receive Date: 20120201
  Receipt Date: 20120120
  Transmission Date: 20120608
  Serious: Yes (Other)
  Sender: FDA-Public Use
  Company Number: PHEH2012US001861

PATIENT
  Sex: Male

DRUGS (4)
  1. VIMPAT [Suspect]
  2. ZOLOFT [Suspect]
  3. TEGRETOL-XR [Suspect]
     Dosage: 600 MG IN MORNING AND 400 MG IN EVENING
  4. LAMICTAL [Suspect]

REACTIONS (5)
  - DIZZINESS [None]
  - VOMITING [None]
  - LEARNING DISORDER [None]
  - MALAISE [None]
  - CONVULSION [None]
